FAERS Safety Report 20617616 (Version 1)
Quarter: 2022Q1

REPORT INFORMATION
  Report Type: Spontaneous
  Country: US (occurrence: None)
  Receive Date: 20220321
  Receipt Date: 20220321
  Transmission Date: 20220423
  Serious: Yes (Other)
  Sender: FDA-Public Use
  Company Number: None

PATIENT
  Age: 76 Year
  Sex: Female
  Weight: 69.75 kg

DRUGS (1)
  1. SOTROVIMAB [Suspect]
     Active Substance: SOTROVIMAB
     Indication: COVID-19
     Dosage: OTHER FREQUENCY : ONCE DURING INFUSI;?OTHER ROUTE : INFUSION;?
     Route: 050
     Dates: start: 20220130, end: 20220130

REACTIONS (8)
  - Infusion related reaction [None]
  - Arthralgia [None]
  - Back pain [None]
  - Joint swelling [None]
  - Anaemia [None]
  - Autoimmune disorder [None]
  - Platelet disorder [None]
  - Mobility decreased [None]

NARRATIVE: CASE EVENT DATE: 20220216
